FAERS Safety Report 21537352 (Version 3)
Quarter: 2022Q4

REPORT INFORMATION
  Report Type: Spontaneous
  Country: JP (occurrence: JP)
  Receive Date: 20221101
  Receipt Date: 20221129
  Transmission Date: 20230113
  Serious: No
  Sender: FDA-Public Use
  Company Number: JP-PFIZER INC-PV202200092601

PATIENT
  Age: 71 Year
  Sex: Female
  Weight: 55 kg

DRUGS (1)
  1. PAXLOVID [Suspect]
     Active Substance: NIRMATRELVIR\RITONAVIR
     Indication: COVID-19 treatment
     Dosage: [PF-07321332 300MG]/[RITONAVIR 100 MG]; 2X/DAY
     Route: 048
     Dates: start: 20221025, end: 20221030

REACTIONS (1)
  - Product prescribing error [Unknown]

NARRATIVE: CASE EVENT DATE: 20221025
